FAERS Safety Report 11314175 (Version 3)
Quarter: 2015Q4

REPORT INFORMATION
  Report Type: Spontaneous
  Country: CH (occurrence: CH)
  Receive Date: 20150727
  Receipt Date: 20151016
  Transmission Date: 20160304
  Serious: Yes (Hospitalization, Other)
  Sender: FDA-Public Use
  Company Number: CH-009507513-1507CHE009449

PATIENT
  Age: 36 Year
  Sex: Male

DRUGS (2)
  1. PROPECIA [Suspect]
     Active Substance: FINASTERIDE
     Dosage: 1 MG, QD
     Route: 048
     Dates: start: 20030415
  2. PROPECIA [Suspect]
     Active Substance: FINASTERIDE
     Dosage: 1-2 TABLETS PER WEEK
     Dates: start: 2015

REACTIONS (3)
  - Testicular yolk sac tumour [Unknown]
  - Testicular embryonal carcinoma [Unknown]
  - Testis cancer [Unknown]

NARRATIVE: CASE EVENT DATE: 2014
